FAERS Safety Report 21146140 (Version 1)
Quarter: 2022Q3

REPORT INFORMATION
  Report Type: Spontaneous
  Country: NL (occurrence: NL)
  Receive Date: 20220729
  Receipt Date: 20220729
  Transmission Date: 20221027
  Serious: Yes (Disabling)
  Sender: FDA-Public Use
  Company Number: None

PATIENT
  Sex: Female
  Weight: 59 kg

DRUGS (10)
  1. IVABRADINE [Suspect]
     Active Substance: IVABRADINE
     Indication: Sinus tachycardia
     Dosage: 15 MILLIGRAM, QD
     Route: 065
  2. IVABRADINE [Suspect]
     Active Substance: IVABRADINE
     Dosage: 10 MILLIGRAM, QD
     Route: 065
     Dates: start: 202109
  3. ATORVASTATIN [Suspect]
     Active Substance: ATORVASTATIN
     Indication: Type IIa hyperlipidaemia
     Dosage: 5 MILLIGRAM, QD
     Route: 065
     Dates: start: 2020
  4. ISOSORBIDE MONONITRATE [Suspect]
     Active Substance: ISOSORBIDE MONONITRATE
     Indication: Vasospasm
     Dosage: 25 MILLIGRAM, QD
     Route: 065
     Dates: start: 202112
  5. ZINC [Concomitant]
     Active Substance: ZINC
     Indication: Product used for unknown indication
     Dosage: UNK
     Route: 065
  6. CHOLECALCIFEROL [Concomitant]
     Active Substance: CHOLECALCIFEROL
     Indication: Product used for unknown indication
     Dosage: UNK
     Route: 065
  7. ASCORBINEZUUR [Concomitant]
     Indication: Product used for unknown indication
     Dosage: UNK
     Route: 065
  8. CALCIUM [Concomitant]
     Active Substance: CALCIUM
     Indication: Product used for unknown indication
     Dosage: UNK
     Route: 065
  9. CYANOCOBALAMIN [Concomitant]
     Active Substance: CYANOCOBALAMIN
     Indication: Product used for unknown indication
     Dosage: UNK
     Route: 065
  10. MAGNESIUMCITRAT [Concomitant]
     Indication: Product used for unknown indication
     Dosage: UNK
     Route: 065

REACTIONS (2)
  - Pseudohypoglycaemia [Recovering/Resolving]
  - Weight decreased [Recovering/Resolving]
